FAERS Safety Report 12712725 (Version 2)
Quarter: 2016Q4

REPORT INFORMATION
  Report Type: Report from Study
  Country: None (occurrence: CA)
  Receive Date: 20160902
  Receipt Date: 20161012
  Transmission Date: 20170207
  Serious: Yes (Hospitalization)
  Sender: FDA-Public Use
  Company Number: CA-ABBVIE-16K-028-1715981-00

PATIENT
  Age: 38 Year
  Sex: Female
  Weight: 106.69 kg

DRUGS (1)
  1. HUMIRA [Suspect]
     Active Substance: ADALIMUMAB
     Indication: CROHN^S DISEASE
     Route: 058
     Dates: start: 20150128

REACTIONS (7)
  - Weight decreased [Not Recovered/Not Resolved]
  - Staphylococcus test positive [Unknown]
  - General symptom [Unknown]
  - Fungal infection [Recovering/Resolving]
  - Impaired healing [Not Recovered/Not Resolved]
  - Excessive skin [Not Recovered/Not Resolved]
  - Streptococcus test positive [Unknown]

NARRATIVE: CASE EVENT DATE: 2015
